FAERS Safety Report 13407683 (Version 3)
Quarter: 2017Q2

REPORT INFORMATION
  Report Type: Spontaneous
  Country: CO (occurrence: CO)
  Receive Date: 20170406
  Receipt Date: 20170614
  Transmission Date: 20170830
  Serious: Yes (Death, Hospitalization, Other)
  Sender: FDA-Public Use
  Company Number: CO-AMGEN-COLSP2017050742

PATIENT
  Age: 37 Year
  Sex: Female
  Weight: 60 kg

DRUGS (5)
  1. ALLOPURINOL. [Concomitant]
     Active Substance: ALLOPURINOL
     Indication: GOUTY ARTHRITIS
     Dosage: UNK
  2. PREDNISOLONE. [Concomitant]
     Active Substance: PREDNISOLONE
     Indication: RHEUMATOID ARTHRITIS
     Dosage: UNK
  3. COLCHICINE. [Concomitant]
     Active Substance: COLCHICINE
     Indication: GOUTY ARTHRITIS
     Dosage: UNK
  4. ENBREL [Suspect]
     Active Substance: ETANERCEPT
     Indication: RHEUMATOID ARTHRITIS
     Dosage: 50 MG, WEEKLY
     Route: 065
     Dates: start: 2014
  5. FEBUXOSTAT. [Concomitant]
     Active Substance: FEBUXOSTAT
     Indication: GOUTY ARTHRITIS
     Dosage: UNK

REACTIONS (11)
  - Abdominal pain [Unknown]
  - Abdominal sepsis [Fatal]
  - Multiple organ dysfunction syndrome [Fatal]
  - Exophthalmos [Unknown]
  - Septic shock [Unknown]
  - Bile duct obstruction [Unknown]
  - Peritonitis [Unknown]
  - Ovarian cyst [Unknown]
  - Pulmonary embolism [Unknown]
  - Appendicitis [Unknown]
  - Endometriosis [Unknown]

NARRATIVE: CASE EVENT DATE: 201703
